FAERS Safety Report 7421486-4 (Version None)
Quarter: 2011Q1

REPORT INFORMATION
  Report Type: 
  Country: None (occurrence: None)
  Receive Date: 20110302
  Receipt Date: 20101213
  Transmission Date: 20110831
  Serious: No
  Sender: FDA-Public Use
  Company Number: 020334

PATIENT
  Sex: Female
  Weight: 18.6 kg

DRUGS (3)
  1. CIMZIA [Suspect]
     Indication: CROHN'S DISEASE
     Dosage: (200 MG 1X/4 WEEKS SUBCUTANEOUS)
     Route: 058
     Dates: start: 20100809, end: 20101001
  2. M.V.I. [Concomitant]
  3. IRON [Concomitant]

REACTIONS (2)
  - LIP SWELLING [None]
  - CHAPPED LIPS [None]
